FAERS Safety Report 10270088 (Version 3)
Quarter: 2015Q2

REPORT INFORMATION
  Report Type: Report from Study
  Country: TR (occurrence: TR)
  Receive Date: 20140701
  Receipt Date: 20150409
  Transmission Date: 20150821
  Serious: Yes (Hospitalization)
  Sender: FDA-Public Use
  Company Number: TR-NOVOPROD-414436

PATIENT
  Age: 43 Year
  Sex: Female
  Weight: 88 kg

DRUGS (2)
  1. NOVORAPID [Suspect]
     Active Substance: INSULIN ASPART
     Indication: GESTATIONAL DIABETES
     Dosage: 18 U, QD (3 U/MEAL AND TOTAL 18 U/DAY)
     Route: 058
     Dates: start: 20140602, end: 20140710
  2. FERRO SANOL [Concomitant]
     Active Substance: FERROUS SULFATE\GLYCINE
     Indication: MINERAL SUPPLEMENTATION
     Dosage: 1X1
     Route: 048
     Dates: start: 201311

REACTIONS (3)
  - Amniotic fluid volume decreased [Not Recovered/Not Resolved]
  - Exposure during pregnancy [Recovered/Resolved]
  - Diabetes mellitus inadequate control [Not Recovered/Not Resolved]

NARRATIVE: CASE EVENT DATE: 20140602
